FAERS Safety Report 6996383-9 (Version None)
Quarter: 2010Q3

REPORT INFORMATION
  Report Type: 
  Country: None (occurrence: None)
  Receive Date: 20100918
  Receipt Date: 20090127
  Transmission Date: 20110219
  Serious: No
  Sender: FDA-Public Use
  Company Number: US-WYE-H07964109

PATIENT
  Sex: Female
  Weight: 61.74 kg

DRUGS (3)
  1. EFFEXOR XR [Suspect]
     Indication: DEPRESSION
     Route: 048
     Dates: start: 20080701, end: 20090127
  2. EFFEXOR XR [Suspect]
     Indication: ANXIETY
  3. LISINOPRIL [Concomitant]

REACTIONS (4)
  - DRUG WITHDRAWAL SYNDROME [None]
  - FEELING ABNORMAL [None]
  - HUNGER [None]
  - NAUSEA [None]
